FAERS Safety Report 26078586 (Version 1)
Quarter: 2025Q4

REPORT INFORMATION
  Report Type: Spontaneous
  Country: US (occurrence: US)
  Receive Date: 20251123
  Receipt Date: 20251123
  Transmission Date: 20260118
  Serious: No
  Sender: JOHNSON AND JOHNSON
  Company Number: US-JNJFOC-20251168344

PATIENT
  Sex: Female

DRUGS (1)
  1. SPRAVATO [Suspect]
     Active Substance: ESKETAMINE
     Indication: Product used for unknown indication
     Route: 045
     Dates: start: 20251112

REACTIONS (4)
  - Burning sensation [Unknown]
  - Rhinorrhoea [Unknown]
  - Nasal congestion [Unknown]
  - Insomnia [Unknown]

NARRATIVE: CASE EVENT DATE: 20251121
